FAERS Safety Report 19966152 (Version 2)
Quarter: 2021Q4

REPORT INFORMATION
  Report Type: Report from Study
  Country: CH (occurrence: CH)
  Receive Date: 20211019
  Receipt Date: 20211116
  Transmission Date: 20220303
  Serious: Yes (Hospitalization)
  Sender: FDA-Public Use
  Company Number: CH-ABBVIE-21K-151-4114831-00

PATIENT
  Sex: Male

DRUGS (2)
  1. CARBIDOPA\LEVODOPA [Suspect]
     Active Substance: CARBIDOPA\LEVODOPA
     Indication: Parkinson^s disease
     Route: 050
     Dates: start: 20181120
  2. CARBIDOPA\LEVODOPA [Suspect]
     Active Substance: CARBIDOPA\LEVODOPA
     Dosage: MD: 7.0 ML, CRD: 3.2 ML/H, CRN: 0 ML/H, ED: 2.5 ML
     Route: 050
     Dates: start: 20211006

REACTIONS (5)
  - Aspiration [Recovered/Resolved]
  - Pneumonia [Recovered/Resolved]
  - Dyskinesia [Unknown]
  - Device dislocation [Recovered/Resolved]
  - General physical health deterioration [Recovering/Resolving]

NARRATIVE: CASE EVENT DATE: 20210101
